FAERS Safety Report 6274659-0 (Version None)
Quarter: 2009Q3

REPORT INFORMATION
  Report Type: 
  Country: None (occurrence: None)
  Receive Date: 20090717
  Receipt Date: 20090703
  Transmission Date: 20100115
  Serious: Yes (Other)
  Sender: FDA-Public Use
  Company Number: 2009-194692-NL

PATIENT
  Sex: Female

DRUGS (6)
  1. MIRTAZAPINE [Suspect]
     Indication: ANXIETY
     Dosage: 15 MG DAILY
     Dates: start: 20010101, end: 20020101
  2. MIRTAZAPINE [Suspect]
     Indication: DEPRESSION
     Dosage: 15 MG DAILY
     Dates: start: 20010101, end: 20020101
  3. MIRTAZAPINE [Suspect]
     Indication: ANXIETY
     Dosage: 30 MG DAILY
     Dates: start: 20020101, end: 20090101
  4. MIRTAZAPINE [Suspect]
     Indication: DEPRESSION
     Dosage: 30 MG DAILY
     Dates: start: 20020101, end: 20090101
  5. ZYPREXA [Concomitant]
  6. EFFEXOR [Concomitant]

REACTIONS (1)
  - HEPATIC STEATOSIS [None]
